FAERS Safety Report 11747919 (Version 4)
Quarter: 2016Q1

REPORT INFORMATION
  Report Type: Report from Study
  Country: BR (occurrence: BR)
  Receive Date: 20151117
  Receipt Date: 20160125
  Transmission Date: 20160525
  Serious: Yes (Hospitalization)
  Sender: FDA-Public Use
  Company Number: BR-UCBSA-2015036112

PATIENT
  Age: 61 Year
  Sex: Female
  Weight: 50 kg

DRUGS (12)
  1. METHOTREXATE [Concomitant]
     Active Substance: METHOTREXATE
     Dosage: 200 MG, WEEKLY (QW)
     Route: 048
     Dates: start: 2014
  2. SELOZOK [Concomitant]
     Active Substance: METOPROLOL SUCCINATE
     Indication: PNEUMONIA
     Dosage: 50 MG, 2X/DAY (BID)
     Route: 048
     Dates: start: 20151107, end: 20151220
  3. CERTOLIZUMAB PEGOL [Suspect]
     Active Substance: CERTOLIZUMAB PEGOL
     Indication: RHEUMATOID ARTHRITIS
     Dosage: 400 MG, MONTHLY (QM)
     Dates: start: 201503, end: 20151031
  4. PREDNISONE. [Concomitant]
     Active Substance: PREDNISONE
     Indication: RHEUMATOID ARTHRITIS
     Dosage: 25 MG,  ONCE DAILY (QD)
     Route: 048
     Dates: start: 2014
  5. OXYGEN. [Concomitant]
     Active Substance: OXYGEN
     Indication: DYSPNOEA
     Dosage: UNK
     Dates: start: 20151105, end: 20151126
  6. QUETIAPINE [Concomitant]
     Active Substance: QUETIAPINE
     Indication: SLEEP DISORDER
     Dosage: 25 MG, ONCE DAILY (QD)
     Route: 048
     Dates: start: 20151126, end: 20151219
  7. FUROSEMIDE. [Concomitant]
     Active Substance: FUROSEMIDE
     Indication: PERICARDIAL EFFUSION
     Dosage: 40 MG, UNK
     Route: 048
     Dates: start: 20151126, end: 20151219
  8. OMEPRAZOLE. [Concomitant]
     Active Substance: OMEPRAZOLE
     Indication: GASTRIC DISORDER
     Dosage: 20 MG, ONCE DAILY (QD)
     Route: 048
     Dates: start: 20151107, end: 20151220
  9. SPIRONOLACTONE. [Concomitant]
     Active Substance: SPIRONOLACTONE
     Indication: PERICARDIAL EFFUSION
     Dosage: 100 MG, ONCE DAILY (QD)
     Route: 048
     Dates: start: 20151126, end: 20151219
  10. METHOTREXATE [Concomitant]
     Active Substance: METHOTREXATE
     Indication: RHEUMATOID ARTHRITIS
     Dosage: 50 MG, WEEKLY (QW)
     Route: 048
     Dates: start: 2014, end: 201511
  11. ACETYLCYSTEINE. [Concomitant]
     Active Substance: ACETYLCYSTEINE
     Indication: CATARRH
     Dosage: UNK
     Dates: start: 20151214
  12. PREDNISONE. [Concomitant]
     Active Substance: PREDNISONE
     Indication: PAIN
     Dosage: 20 MG, ONCE DAILY (QD)
     Route: 048
     Dates: start: 2013

REACTIONS (12)
  - Pericardial effusion [Not Recovered/Not Resolved]
  - Decreased appetite [Recovered/Resolved]
  - Peripheral swelling [Not Recovered/Not Resolved]
  - Pain [Not Recovered/Not Resolved]
  - Pneumonia [Recovering/Resolving]
  - Tremor [Not Recovered/Not Resolved]
  - Pulmonary oedema [Not Recovered/Not Resolved]
  - Asthenia [Not Recovered/Not Resolved]
  - Weight decreased [Recovering/Resolving]
  - Productive cough [Not Recovered/Not Resolved]
  - Dyspnoea [Not Recovered/Not Resolved]
  - Anaemia [Not Recovered/Not Resolved]

NARRATIVE: CASE EVENT DATE: 201511
